FAERS Safety Report 18834899 (Version 1)
Quarter: 2021Q1

REPORT INFORMATION
  Report Type: Spontaneous
  Country: JP (occurrence: JP)
  Receive Date: 20210203
  Receipt Date: 20210203
  Transmission Date: 20210419
  Serious: Yes (Other)
  Sender: FDA-Public Use
  Company Number: JP-SUN PHARMACEUTICAL INDUSTRIES LTD-2021R1-278598

PATIENT
  Age: 38 Year
  Sex: Female

DRUGS (3)
  1. ASPIRIN. [Suspect]
     Active Substance: ASPIRIN
     Indication: PRODUCT USED FOR UNKNOWN INDICATION
     Dosage: UNK (LOW DOSE (81 MG)
     Route: 065
  2. OMALIZUMAB. [Concomitant]
     Active Substance: OMALIZUMAB
     Indication: PRODUCT USED FOR UNKNOWN INDICATION
     Dosage: 150 MILLIGRAM, MONTHLY
     Route: 058
  3. EBASTINE [Suspect]
     Active Substance: EBASTINE
     Indication: PRURITUS
     Dosage: 10 MILLIGRAM, DAILY
     Route: 065

REACTIONS (3)
  - Urticaria [Recovering/Resolving]
  - Live birth [Unknown]
  - Exposure during pregnancy [Unknown]
